FAERS Safety Report 5429007-2 (Version None)
Quarter: 2007Q3

REPORT INFORMATION
  Report Type: 
  Country: None (occurrence: None)
  Receive Date: 20070829
  Receipt Date: 20060817
  Transmission Date: 20080115
  Serious: No
  Sender: FDA-Public Use
  Company Number: A0617124A

PATIENT
  Sex: Female

DRUGS (4)
  1. MALARONE [Suspect]
     Indication: MALARIA
     Dosage: 1TAB PER DAY
     Route: 048
     Dates: start: 20060730
  2. WELLBUTRIN [Concomitant]
  3. ZOLOFT [Concomitant]
  4. ACURETIC [Concomitant]

REACTIONS (2)
  - ABDOMINAL PAIN UPPER [None]
  - OVERDOSE [None]
